FAERS Safety Report 7027992-9 (Version None)
Quarter: 2010Q4

REPORT INFORMATION
  Report Type: 
  Country: None (occurrence: None)
  Receive Date: 20101005
  Receipt Date: 20100921
  Transmission Date: 20110411
  Serious: Yes (Life-Threatening, Hospitalization)
  Sender: FDA-Public Use
  Company Number: US-ASTRAZENECA-2010SE36395

PATIENT
  Age: 20200 Day
  Sex: Male
  Weight: 113.4 kg

DRUGS (9)
  1. SEROQUEL [Suspect]
     Indication: SUICIDE ATTEMPT
     Route: 048
     Dates: start: 20100201
  2. SEROQUEL [Suspect]
     Route: 048
     Dates: start: 20100101, end: 20100101
  3. SEROQUEL [Suspect]
     Route: 048
     Dates: start: 20100101
  4. CITALOPRAM HYDROBROMIDE [Concomitant]
     Indication: DEPRESSION
  5. LAMOTRIGINE [Concomitant]
     Indication: DEPRESSION
  6. MIRTAZAPINE [Concomitant]
     Indication: DEPRESSION
  7. MIRTAZAPINE [Concomitant]
     Indication: INSOMNIA
  8. LISINOPRIL [Concomitant]
     Indication: HYPERTENSION
  9. LEVOTHYROXINE SODIUM [Concomitant]
     Indication: THYROID DISORDER

REACTIONS (3)
  - ABDOMINAL DISCOMFORT [None]
  - LOSS OF CONSCIOUSNESS [None]
  - ROAD TRAFFIC ACCIDENT [None]
